FAERS Safety Report 7161587-1 (Version None)
Quarter: 2010Q4

REPORT INFORMATION
  Report Type: 
  Country: None (occurrence: None)
  Receive Date: 20101215
  Receipt Date: 20101208
  Transmission Date: 20110411
  Serious: Yes (Hospitalization)
  Sender: FDA-Public Use
  Company Number: FR-SP-2010-06882

PATIENT
  Age: 73 Year
  Sex: Male

DRUGS (1)
  1. IMMUCYST [Suspect]
     Indication: BLADDER CANCER
     Route: 048

REACTIONS (2)
  - ABDOMINAL PAIN UPPER [None]
  - INCORRECT ROUTE OF DRUG ADMINISTRATION [None]
